FAERS Safety Report 6440054-4 (Version None)
Quarter: 2009Q4

REPORT INFORMATION
  Report Type: 
  Country: None (occurrence: None)
  Receive Date: 20091112
  Receipt Date: 20091112
  Transmission Date: 20100525
  Serious: Yes (Life-Threatening, Hospitalization, Disabling)
  Sender: FDA-Public Use
  Company Number: None

PATIENT
  Sex: Female
  Weight: 80.9 kg

DRUGS (2)
  1. DEPO-PROVERA [Suspect]
     Indication: CONTRACEPTION
     Dosage: 150 MG EVERY 3 MONTHS IM
     Route: 030
  2. PHENTERMINE [Concomitant]

REACTIONS (5)
  - CEREBRAL INFARCTION [None]
  - CEREBRAL VENOUS THROMBOSIS [None]
  - CONVULSION [None]
  - HAEMORRHAGE INTRACRANIAL [None]
  - SUPERIOR SAGITTAL SINUS THROMBOSIS [None]
